FAERS Safety Report 8189802-6 (Version None)
Quarter: 2012Q1

REPORT INFORMATION
  Report Type: 
  Country: None (occurrence: None)
  Receive Date: 20120307
  Receipt Date: 20110514
  Transmission Date: 20120608
  Serious: No
  Sender: FDA-Public Use
  Company Number: US-GLAXOSMITHKLINE-A0928409A

PATIENT
  Sex: Female

DRUGS (2)
  1. REQUIP [Suspect]
     Indication: RESTLESS LEGS SYNDROME
  2. REQUIP XL [Suspect]
     Indication: RESTLESS LEGS SYNDROME

REACTIONS (4)
  - OFF LABEL USE [None]
  - OVERDOSE [None]
  - INSOMNIA [None]
  - DRUG INEFFECTIVE [None]
